FAERS Safety Report 9807366 (Version 1)
Quarter: 2014Q1

REPORT INFORMATION
  Report Type: Report from Study
  Country: US (occurrence: US)
  Receive Date: 20140110
  Receipt Date: 20140110
  Transmission Date: 20141002
  Serious: Yes (Other)
  Sender: FDA-Public Use
  Company Number: US-ROCHE-1329726

PATIENT
  Sex: Female
  Weight: 55.39 kg

DRUGS (13)
  1. LUCENTIS [Suspect]
     Indication: AGE-RELATED MACULAR DEGENERATION
     Route: 050
     Dates: start: 20091210
  2. AVASTIN [Suspect]
     Indication: AGE-RELATED MACULAR DEGENERATION
     Dosage: OD
     Route: 065
     Dates: start: 20090713, end: 20091118
  3. BONIVA [Suspect]
     Indication: PRODUCT USED FOR UNKNOWN INDICATION
     Route: 065
  4. CELEBREX [Concomitant]
  5. CELEXA (UNITED STATES) [Concomitant]
  6. GABAPENTIN [Concomitant]
  7. LUTEIN [Concomitant]
  8. MOTRIN [Concomitant]
  9. TIMOLOL [Concomitant]
     Indication: GLAUCOMA
     Dosage: IN THE MORNING, OD
     Route: 047
  10. OMEGA 3 [Concomitant]
  11. PHENYLEPHRINE [Concomitant]
     Indication: MYDRIASIS
     Dosage: OU
     Route: 065
  12. TROPICAMIDE [Concomitant]
     Indication: MYDRIASIS
     Dosage: OU
     Route: 065
  13. PROPARACAINE [Concomitant]
     Indication: MYDRIASIS
     Dosage: OU
     Route: 065

REACTIONS (4)
  - Macular oedema [Unknown]
  - Visual impairment [Unknown]
  - Retinal tear [Unknown]
  - Cataract nuclear [Unknown]
